FAERS Safety Report 7248189-3 (Version None)
Quarter: 2011Q1

REPORT INFORMATION
  Report Type: 
  Country: None (occurrence: None)
  Receive Date: 20110127
  Receipt Date: 20110118
  Transmission Date: 20110831
  Serious: Yes (Other)
  Sender: FDA-Public Use
  Company Number: US-BAYER-2011-005031

PATIENT
  Sex: Female

DRUGS (1)
  1. OCELLA [Suspect]
     Indication: PRODUCT USED FOR UNKNOWN INDICATION
     Route: 048

REACTIONS (4)
  - PAIN [None]
  - INJURY [None]
  - EMOTIONAL DISTRESS [None]
  - CHOLECYSTECTOMY [None]
